FAERS Safety Report 5260921-7 (Version None)
Quarter: 2007Q1

REPORT INFORMATION
  Report Type: 
  Country: None (occurrence: None)
  Receive Date: 20070309
  Receipt Date: 20070301
  Transmission Date: 20070707
  Serious: Yes (Other)
  Sender: FDA-Public Use
  Company Number: HQWYE336101MAR07

PATIENT
  Age: 68 Year

DRUGS (10)
  1. AMIODARONE HCL [Suspect]
     Route: 065
  2. LANSOPRAZOLE [Suspect]
     Route: 065
  3. ACIPIMOX [Suspect]
     Route: 065
  4. PERINDOPRIL ERBUMINE [Suspect]
     Route: 065
  5. DIGOXIN [Suspect]
     Route: 065
  6. EZETIMIBE [Suspect]
     Route: 065
  7. FUROSEMIDE [Suspect]
     Route: 065
  8. FUROSEMIDE [Suspect]
     Route: 065
  9. BISOPROLOL [Suspect]
     Route: 065
  10. ASPIRIN [Suspect]
     Route: 065

REACTIONS (5)
  - DIZZINESS [None]
  - DYSPNOEA [None]
  - FATIGUE [None]
  - OEDEMA PERIPHERAL [None]
  - PARAESTHESIA [None]
